FAERS Safety Report 21633840 (Version 1)
Quarter: 2022Q4

REPORT INFORMATION
  Report Type: Spontaneous
  Country: US (occurrence: US)
  Receive Date: 20221123
  Receipt Date: 20221123
  Transmission Date: 20230113
  Serious: Yes (Other)
  Sender: FDA-Public Use
  Company Number: US-BAYER-2022A156574

PATIENT
  Age: 72 Year
  Sex: Female

DRUGS (2)
  1. CORICIDIN HBP COLD AND FLU [Suspect]
     Active Substance: ACETAMINOPHEN\CHLORPHENIRAMINE MALEATE
     Indication: Cough
     Dosage: TWO TABLETS EVERY FOUR HOURS
     Dates: start: 20221004, end: 20221006
  2. CORICIDIN HBP MAXIMUM STRENGTH FLU [Suspect]
     Active Substance: ACETAMINOPHEN\CHLORPHENIRAMINE MALEATE\DEXTROMETHORPHAN HYDROBROMIDE
     Indication: Cough
     Dosage: 30 MG EVERY 4HRS
     Dates: start: 20221021, end: 20221024

REACTIONS (1)
  - Drug ineffective [Not Recovered/Not Resolved]
